FAERS Safety Report 6369218-5 (Version None)
Quarter: 2009Q3

REPORT INFORMATION
  Report Type: 
  Country: None (occurrence: None)
  Receive Date: 20090916
  Receipt Date: 20090908
  Transmission Date: 20100115
  Serious: Yes (Hospitalization)
  Sender: FDA-Public Use
  Company Number: ADR20412009

PATIENT
  Age: 31 Year
  Sex: Male

DRUGS (1)
  1. RISPERIDONE [Suspect]
     Dosage: 3MG ORAL
     Route: 048

REACTIONS (3)
  - ALCOHOL USE [None]
  - PARANOIA [None]
  - TREATMENT NONCOMPLIANCE [None]
